FAERS Safety Report 9234445 (Version 1)
Quarter: 2013Q2

REPORT INFORMATION
  Report Type: Spontaneous
  Country: US (occurrence: US)
  Receive Date: 20130416
  Receipt Date: 20130416
  Transmission Date: 20140414
  Serious: No
  Sender: FDA-Public Use
  Company Number: US-BANPHARM-20120040

PATIENT
  Age: 89 Year
  Sex: Female
  Weight: 54.54 kg

DRUGS (6)
  1. ALEVE LIQUID GELS 220 MG [Suspect]
     Indication: ARTHRITIS
     Dosage: 1 DF, QD,
     Route: 048
     Dates: start: 20120730
  2. BAYER? 81MG ENTERIC ASPIRIN - ANY SIZE [Concomitant]
     Route: 048
  3. PRAVACHOL [Concomitant]
  4. DIOVAN [Concomitant]
  5. AMLODIPINE [Concomitant]
  6. ATENOLOL [Concomitant]

REACTIONS (1)
  - Pruritus generalised [Not Recovered/Not Resolved]
